FAERS Safety Report 4559298-1 (Version None)
Quarter: 2005Q1

REPORT INFORMATION
  Report Type: 
  Country: None (occurrence: None)
  Receive Date: 20050124
  Receipt Date: 20050111
  Transmission Date: 20050727
  Serious: Yes (Hospitalization)
  Sender: FDA-Public Use
  Company Number: FR-JNJFOC-20050102577

PATIENT
  Age: 65 Year
  Sex: Male

DRUGS (5)
  1. DURAGESIC [Suspect]
     Route: 062
  2. DURAGESIC [Suspect]
     Indication: DRUG USE FOR UNKNOWN INDICATION
     Route: 062
  3. CORTANCYL [Suspect]
     Indication: DRUG USE FOR UNKNOWN INDICATION
     Route: 049
  4. ENANTONE [Concomitant]
     Route: 058
  5. ZESTRIL [Concomitant]
     Route: 049

REACTIONS (2)
  - OEDEMA [None]
  - WEIGHT INCREASED [None]
